FAERS Safety Report 16613281 (Version 2)
Quarter: 2019Q3

REPORT INFORMATION
  Report Type: Spontaneous
  Country: BR (occurrence: BR)
  Receive Date: 20190722
  Receipt Date: 20190826
  Transmission Date: 20191004
  Serious: Yes (Other)
  Sender: FDA-Public Use
  Company Number: BR-009507513-1907BRA011624

PATIENT
  Sex: Female
  Weight: 62 kg

DRUGS (3)
  1. DIAMICRON [Concomitant]
     Active Substance: GLICLAZIDE
     Indication: DIABETES MELLITUS
     Dosage: 1 TABLET(60 MILLIGRAM)
     Route: 048
  2. JANUVIA [Suspect]
     Active Substance: SITAGLIPTIN PHOSPHATE
     Indication: DIABETES MELLITUS
     Dosage: 1TABLET(100 MILLIGRAM) AFTER LUNCH
     Route: 048
     Dates: start: 2009, end: 20190714
  3. GLIFAGE [Concomitant]
     Active Substance: METFORMIN HYDROCHLORIDE
     Indication: DIABETES MELLITUS
     Dosage: 4 TABLETS PER DAY
     Route: 048

REACTIONS (10)
  - Abdominal discomfort [Recovered/Resolved]
  - Cerebrovascular accident [Unknown]
  - Cardiovascular disorder [Unknown]
  - Blood magnesium decreased [Unknown]
  - Tendonitis [Unknown]
  - Weight increased [Unknown]
  - Hyperglycaemia [Unknown]
  - Blood glucose abnormal [Unknown]
  - Blood cholesterol increased [Unknown]
  - Dyschezia [Unknown]

NARRATIVE: CASE EVENT DATE: 2013
